FAERS Safety Report 10330008 (Version 1)
Quarter: 2014Q3

REPORT INFORMATION
  Report Type: Spontaneous
  Country: CN (occurrence: CN)
  Receive Date: 20140721
  Receipt Date: 20140721
  Transmission Date: 20150326
  Serious: Yes (Hospitalization)
  Sender: FDA-Public Use
  Company Number: CN-GLAXOSMITHKLINE-B1016117A

PATIENT
  Age: 80 Year
  Sex: Female
  Weight: 52.5 kg

DRUGS (3)
  1. TCM [Suspect]
     Active Substance: HERBALS
     Indication: EMPHYSEMA
     Route: 065
  2. SERETIDE [Suspect]
     Active Substance: FLUTICASONE FUROATE\SALMETEROL XINAFOATE
     Indication: EMPHYSEMA
     Route: 055
     Dates: start: 2011, end: 201407
  3. SERETIDE [Suspect]
     Active Substance: FLUTICASONE FUROATE\SALMETEROL XINAFOATE
     Indication: EMPHYSEMA
     Dosage: 1PUFF PER DAY
     Route: 055
     Dates: start: 201407, end: 201407

REACTIONS (6)
  - Product quality issue [Unknown]
  - Nasopharyngitis [Unknown]
  - Expired product administered [Unknown]
  - Drug ineffective [Unknown]
  - Overdose [Unknown]
  - Disease recurrence [Unknown]

NARRATIVE: CASE EVENT DATE: 2011
